FAERS Safety Report 10935022 (Version 1)
Quarter: 2015Q1

REPORT INFORMATION
  Report Type: Report from Study
  Country: DE (occurrence: DE)
  Receive Date: 20150320
  Receipt Date: 20150320
  Transmission Date: 20150721
  Serious: Yes (Other)
  Sender: FDA-Public Use
  Company Number: DE-ABBVIE-15P-114-1352106-00

PATIENT
  Age: 76 Year
  Sex: Male

DRUGS (1)
  1. DUODOPA [Suspect]
     Active Substance: CARBIDOPA\LEVODOPA
     Indication: PARKINSON^S DISEASE
     Dosage: 20/5MG/ML
     Route: 050

REACTIONS (19)
  - Drug ineffective [Unknown]
  - Parkinson^s disease [Unknown]
  - Device difficult to use [Unknown]
  - Hallucination [Unknown]
  - Gait disturbance [Unknown]
  - Economic problem [Unknown]
  - Device issue [Unknown]
  - Device alarm issue [Unknown]
  - Dementia [Unknown]
  - Dysphagia [Unknown]
  - Screaming [Unknown]
  - Unevaluable event [Unknown]
  - Drooling [Unknown]
  - Knee arthroplasty [Unknown]
  - Abnormal behaviour [Unknown]
  - Hyperhidrosis [Unknown]
  - Gastritis [Unknown]
  - Fall [Unknown]
  - Speech disorder [Unknown]
